FAERS Safety Report 12309762 (Version 1)
Quarter: 2016Q2

REPORT INFORMATION
  Report Type: Other
  Country: None (occurrence: RS)
  Receive Date: 20160427
  Receipt Date: 20160427
  Transmission Date: 20160815
  Serious: Yes (Hospitalization, Other)
  Sender: FDA-Public Use
  Company Number: RS-MERCK KGAA-1051068

PATIENT

DRUGS (1)
  1. NOVOTHYROX [Suspect]
     Active Substance: LEVOTHYROXINE SODIUM

REACTIONS (15)
  - Helicobacter gastritis [None]
  - Malabsorption [None]
  - Dyspepsia [None]
  - Dry skin [None]
  - Fatigue [None]
  - Memory impairment [None]
  - Ecchymosis [None]
  - Weight fluctuation [None]
  - Muscle contracture [None]
  - Somnolence [None]
  - Asthenia [None]
  - Thyroxine free decreased [None]
  - Blood thyroid stimulating hormone increased [None]
  - Decreased appetite [None]
  - Faeces hard [None]
